FAERS Safety Report 9850311 (Version 1)
Quarter: 2014Q1

REPORT INFORMATION
  Report Type: Spontaneous
  Country: BE (occurrence: BE)
  Receive Date: 20140128
  Receipt Date: 20140128
  Transmission Date: 20141002
  Serious: Yes (Death)
  Sender: FDA-Public Use
  Company Number: BE-ABBVIE-14P-013-1193945-00

PATIENT
  Age: 37 Year
  Sex: Male

DRUGS (4)
  1. LOPINAVIR/RITONAVIR [Suspect]
     Indication: HIV INFECTION
  2. LAMIVUDINE [Suspect]
     Indication: HIV INFECTION
  3. TENOFOVIR [Suspect]
     Indication: HIV INFECTION
  4. MIDAZOLAM [Suspect]

REACTIONS (5)
  - Immune reconstitution inflammatory syndrome [Fatal]
  - Disseminated cryptococcosis [Fatal]
  - Mycobacterium avium complex infection [Fatal]
  - Status epilepticus [Fatal]
  - Brain oedema [Fatal]
